FAERS Safety Report 5143960-6 (Version None)
Quarter: 2006Q4

REPORT INFORMATION
  Report Type: 
  Country: None (occurrence: None)
  Receive Date: 20061106
  Receipt Date: 20061023
  Transmission Date: 20070319
  Serious: Yes (Hospitalization)
  Sender: FDA-Public Use
  Company Number: JP-AVENTIS-200613374JP

PATIENT
  Sex: Female
  Weight: 41 kg

DRUGS (20)
  1. ARAVA [Suspect]
     Indication: RHEUMATOID ARTHRITIS
     Route: 048
     Dates: start: 20040312, end: 20040318
  2. ARAVA [Suspect]
     Route: 048
     Dates: start: 20040319, end: 20040730
  3. PREDONINE                          /00016201/ [Concomitant]
     Indication: RHEUMATOID ARTHRITIS
     Route: 048
  4. HYPEN [Concomitant]
     Indication: RHEUMATOID ARTHRITIS
     Route: 048
  5. VOLTAREN SUPPOSITORIEN [Concomitant]
     Indication: RHEUMATOID ARTHRITIS
     Route: 054
  6. BONALON [Concomitant]
     Indication: OSTEOPOROSIS
     Route: 048
  7. FLAVITAN [Concomitant]
     Indication: HYPOVITAMINOSIS
     Route: 048
  8. FERROMIA                           /00023516/ [Concomitant]
     Indication: IRON DEFICIENCY ANAEMIA
     Route: 048
     Dates: end: 20040617
  9. ONEALFA [Concomitant]
     Indication: OSTEOPOROSIS
     Route: 048
  10. LENDORMIN [Concomitant]
     Indication: INSOMNIA
     Route: 048
  11. PURSENNID                          /00571901/ [Concomitant]
     Indication: CONSTIPATION
     Dosage: DOSE: 4 TABLETS
     Route: 048
  12. MAGLAX [Concomitant]
     Indication: CONSTIPATION
     Route: 048
  13. SOLU-CORTEF [Concomitant]
     Route: 042
     Dates: start: 20040506
  14. SOLU-CORTEF [Concomitant]
     Route: 042
     Dates: start: 20040507
  15. SOLU-CORTEF [Concomitant]
     Route: 042
     Dates: start: 20040508
  16. CEFAMEZIN                          /00288502/ [Concomitant]
     Indication: INFECTION PROPHYLAXIS
     Route: 042
     Dates: start: 20040506, end: 20040508
  17. CEFAMEZIN                          /00288502/ [Concomitant]
     Indication: INFECTION PROPHYLAXIS
     Route: 042
     Dates: start: 20040506, end: 20040508
  18. COLDRIN                            /00093802/ [Concomitant]
     Indication: INSOMNIA
     Dosage: DOSE: 3 TABLETS
     Route: 048
     Dates: start: 20040521
  19. KENACORT-A                         /00031902/ [Concomitant]
     Indication: RHEUMATOID ARTHRITIS
     Dates: start: 20040818, end: 20040818
  20. BANAN [Concomitant]
     Route: 048
     Dates: start: 20040618

REACTIONS (1)
  - IMPAIRED HEALING [None]
